FAERS Safety Report 16683164 (Version 1)
Quarter: 2019Q3

REPORT INFORMATION
  Report Type: Spontaneous
  Country: US (occurrence: US)
  Receive Date: 20190624
  Receipt Date: 20190624
  Transmission Date: 20191004
  Serious: No
  Sender: FDA-Public Use
  Company Number: None

PATIENT
  Sex: Female

DRUGS (1)
  1. COPAXONE [Suspect]
     Active Substance: GLATIRAMER ACETATE
     Indication: MULTIPLE SCLEROSIS
     Route: 058
     Dates: start: 20150201, end: 20190621

REACTIONS (5)
  - Injection site induration [None]
  - Amnesia [None]
  - Injection site pain [None]
  - Injection site injury [None]
  - Inappropriate schedule of product administration [None]
